FAERS Safety Report 25272197 (Version 2)
Quarter: 2025Q2

REPORT INFORMATION
  Report Type: Spontaneous
  Country: US (occurrence: US)
  Receive Date: 20250506
  Receipt Date: 20250527
  Transmission Date: 20250716
  Serious: No
  Sender: ALCON
  Company Number: US-ALCON LABORATORIES-ALC2025US000745

PATIENT
  Age: 75 Year
  Sex: Female

DRUGS (2)
  1. ROCKLATAN [Suspect]
     Active Substance: LATANOPROST\NETARSUDIL MESYLATE
     Indication: Intraocular pressure fluctuation
     Route: 047
  2. SIMBRINZA [Suspect]
     Active Substance: BRIMONIDINE TARTRATE\BRINZOLAMIDE
     Indication: Intraocular pressure fluctuation
     Route: 047
     Dates: start: 202401

REACTIONS (1)
  - Blood pressure increased [Not Recovered/Not Resolved]
